FAERS Safety Report 21986632 (Version 3)
Quarter: 2023Q1

REPORT INFORMATION
  Report Type: Spontaneous
  Country: US (occurrence: US)
  Receive Date: 20230213
  Receipt Date: 20230307
  Transmission Date: 20230418
  Serious: No
  Sender: FDA-Public Use
  Company Number: US-PFIZER INC-202300062592

PATIENT
  Age: 87 Year
  Sex: Female
  Weight: 62.59 kg

DRUGS (2)
  1. IBRANCE [Suspect]
     Active Substance: PALBOCICLIB
     Dosage: 100 MG
     Dates: start: 2016
  2. FEMARA [Suspect]
     Active Substance: LETROZOLE
     Dosage: UNK
     Dates: start: 2016

REACTIONS (1)
  - Rash [Not Recovered/Not Resolved]
